FAERS Safety Report 11118139 (Version 1)
Quarter: 2015Q2

REPORT INFORMATION
  Report Type: Spontaneous
  Country: JP (occurrence: None)
  Receive Date: 20150514
  Receipt Date: 20150514
  Transmission Date: 20150821
  Serious: Yes (Other)
  Sender: FDA-Public Use
  Company Number: 2015JP004161

PATIENT
  Age: 45 Year
  Sex: Female

DRUGS (12)
  1. STRONGER NEO-MINOPHAGEN C (CYSTEINE HYDROCHLORIDE, GLYCINE, GLYCYRRHIZIC ACID) [Concomitant]
  2. REGNITE (GABAPENTIN ENACARBIL) TABLET, 300MG [Suspect]
     Active Substance: GABAPENTIN ENACARBIL
     Indication: RESTLESS LEGS SYNDROME
     Route: 048
     Dates: start: 20131010
  3. PARIET (RABEPRAZOLE SODIUM) [Concomitant]
  4. WYPAX (LORAZEPAM) [Concomitant]
  5. MOHRUS (KETOPROFEN) [Concomitant]
  6. NEUROTROPIN (CYANCOBALAMIN, LIDOCAINE HYDROCHLORIDE, PYRIDOXINE HYDROCHLORIDE, THIAMINE HYDROCHLORIDE) [Concomitant]
  7. ADMAC DISPO [Concomitant]
  8. KENACORT-A (TRIAMCINOLONE ACETONIDE) [Concomitant]
  9. LYRICA [Concomitant]
     Active Substance: PREGABALIN
  10. DECADRON [Concomitant]
     Active Substance: DEXAMETHASONE
  11. MUCOSTA (REBAMIPIDE) [Concomitant]
  12. PROCAINE HYDROCHLORIDE [Concomitant]
     Active Substance: PROCAINE HYDROCHLORIDE

REACTIONS (3)
  - Rash pruritic [None]
  - Urticaria [None]
  - Hyperhidrosis [None]

NARRATIVE: CASE EVENT DATE: 20140417
